FAERS Safety Report 7878395-6 (Version None)
Quarter: 2011Q4

REPORT INFORMATION
  Report Type: 
  Country: None (occurrence: None)
  Receive Date: 20111003
  Receipt Date: 20110727
  Transmission Date: 20120403
  Serious: Yes (Hospitalization, Other)
  Sender: FDA-Public Use
  Company Number: 293270USA

PATIENT
  Age: 30 Year
  Sex: Female

DRUGS (1)
  1. APRI (DESOGESTREL W/ETHINYLESTRADIOL) [Suspect]

REACTIONS (7)
  - SPLENIC VEIN THROMBOSIS [None]
  - ABDOMINAL PAIN UPPER [None]
  - PORTAL VEIN THROMBOSIS [None]
  - NAUSEA [None]
  - MESENTERIC VEIN THROMBOSIS [None]
  - MUSCULOSKELETAL CHEST PAIN [None]
  - DECREASED APPETITE [None]
